FAERS Safety Report 24840229 (Version 2)
Quarter: 2025Q1

REPORT INFORMATION
  Report Type: Report from Study
  Country: CA (occurrence: CA)
  Receive Date: 20250114
  Receipt Date: 20250207
  Transmission Date: 20250409
  Serious: Yes (Hospitalization)
  Sender: ABBVIE
  Company Number: CA-ABBVIE-6084067

PATIENT
  Sex: Male

DRUGS (2)
  1. SKYRIZI [Suspect]
     Active Substance: RISANKIZUMAB-RZAA
     Indication: Crohn^s disease
     Route: 042
     Dates: start: 20241119, end: 20241119
  2. SKYRIZI [Suspect]
     Active Substance: RISANKIZUMAB-RZAA
     Indication: Crohn^s disease
     Route: 042
     Dates: start: 202412

REACTIONS (9)
  - Thrombosis [Unknown]
  - Peripheral swelling [Unknown]
  - Immobile [Unknown]
  - Gait disturbance [Unknown]
  - Central venous catheterisation [Unknown]
  - Asthenia [Unknown]
  - Pain [Unknown]
  - Malnutrition [Unknown]
  - Frequent bowel movements [Unknown]
